FAERS Safety Report 6068973-1 (Version None)
Quarter: 2009Q1

REPORT INFORMATION
  Report Type: 
  Country: None (occurrence: None)
  Receive Date: 20090206
  Receipt Date: 20090127
  Transmission Date: 20090719
  Serious: Yes (Death, Hospitalization)
  Sender: FDA-Public Use
  Company Number: US-WATSON-2009-00471

PATIENT
  Sex: Female

DRUGS (7)
  1. FENTANYL-50 [Suspect]
     Indication: SPINAL COLUMN STENOSIS
     Dosage: 1 PATCH, Q3DAYS
     Route: 062
     Dates: start: 20081101, end: 20081129
  2. FENTANYL-50 [Suspect]
     Dosage: 1 PATCH, Q3DAYS
     Route: 062
     Dates: start: 20081101, end: 20081101
  3. VICODIN [Suspect]
     Indication: PAIN
     Dosage: 1 TABLET, TID
     Route: 048
  4. GLIPIZIDE [Concomitant]
     Indication: DIABETES MELLITUS
     Dosage: 2.5 MG, DAILY
     Route: 048
     Dates: start: 19980101, end: 20081101
  5. LEVOTHYROXINE [Concomitant]
     Indication: HYPOTHYROIDISM
     Dosage: 0.125 MG, DAILY
     Route: 048
     Dates: start: 19930101, end: 20081101
  6. MAGACE [Concomitant]
     Indication: DECREASED APPETITE
     Dosage: 40 MG, BID
     Route: 048
     Dates: start: 20070101, end: 20080101
  7. CENTRUM SILVER                     /01292501/ [Concomitant]
     Indication: VITAMIN SUPPLEMENTATION
     Dosage: 1 TABLET, DAILY
     Route: 048

REACTIONS (3)
  - CARDIAC ARREST [None]
  - CORONARY ARTERY DISEASE [None]
  - DIVERTICULUM INTESTINAL HAEMORRHAGIC [None]
